FAERS Safety Report 5117149-0 (Version None)
Quarter: 2006Q3

REPORT INFORMATION
  Report Type: 
  Country: None (occurrence: None)
  Receive Date: 20060927
  Receipt Date: 20060927
  Transmission Date: 20061208
  Serious: Yes (Death, Hospitalization)
  Sender: FDA-Public Use
  Company Number: None

PATIENT
  Sex: Male
  Weight: 81.2 kg

DRUGS (4)
  1. FLUOROURACIL [Suspect]
     Dosage: 26282 MG
  2. CISPLATIN [Suspect]
     Dosage: 451.5 MG
  3. TAXOL [Suspect]
     Dosage: 796 MG
  4. NEULASTA [Suspect]
     Dosage: 12 MG

REACTIONS (5)
  - ANAEMIA [None]
  - CRYPTOGENIC ORGANISING PNEUMONIA [None]
  - PNEUMONITIS [None]
  - PULMONARY EMBOLISM [None]
  - PULMONARY FIBROSIS [None]
